FAERS Safety Report 4701439-7 (Version None)
Quarter: 2005Q2

REPORT INFORMATION
  Report Type: 
  Country: None (occurrence: None)
  Receive Date: 20050628
  Receipt Date: 20050614
  Transmission Date: 20051028
  Serious: Yes (Death)
  Sender: FDA-Public Use
  Company Number: IE-JNJFOC-20050604220

PATIENT
  Sex: Male

DRUGS (9)
  1. DURAGESIC-100 [Suspect]
     Route: 062
  2. DURAGESIC-100 [Suspect]
     Indication: PAIN
     Route: 062
  3. SEVREDOL [Suspect]
     Route: 049
  4. SEVREDOL [Suspect]
     Indication: PAIN
     Route: 049
  5. COLCHICINE [Concomitant]
     Route: 065
  6. RENAGEL [Concomitant]
     Route: 065
  7. DELTACORTRIL ENTERIC [Concomitant]
     Route: 065
  8. ONE-ALPHA [Concomitant]
     Route: 065
  9. WARFANT [Concomitant]
     Route: 065

REACTIONS (5)
  - CARDIAC FAILURE [None]
  - HYPOTENSION [None]
  - PNEUMONIA [None]
  - RESPIRATORY DEPRESSION [None]
  - STUPOR [None]
